FAERS Safety Report 16051874 (Version 1)
Quarter: 2019Q1

REPORT INFORMATION
  Report Type: Spontaneous
  Country: FR (occurrence: FR)
  Receive Date: 20190308
  Receipt Date: 20190308
  Transmission Date: 20190418
  Serious: Yes (Death, Hospitalization)
  Sender: FDA-Public Use
  Company Number: FR-INCYTE CORPORATION-2019IN002000

PATIENT

DRUGS (1)
  1. JAKAVI [Suspect]
     Active Substance: RUXOLITINIB
     Indication: MYELOFIBROSIS
     Dosage: 20 MG, BID
     Route: 065

REACTIONS (9)
  - Mycobacterium avium complex infection [Unknown]
  - Lymphadenopathy [Unknown]
  - Monocytopenia [Unknown]
  - Respiratory failure [Fatal]
  - Weight decreased [Unknown]
  - Hepatosplenomegaly [Unknown]
  - Asthenia [Unknown]
  - Confusional state [Unknown]
  - Pancytopenia [Unknown]
